FAERS Safety Report 6217502-8 (Version None)
Quarter: 2009Q2

REPORT INFORMATION
  Report Type: 
  Country: None (occurrence: None)
  Receive Date: 20090608
  Receipt Date: 20081231
  Transmission Date: 20091009
  Serious: No
  Sender: FDA-Public Use
  Company Number: A0760919A

PATIENT
  Sex: Female

DRUGS (4)
  1. BUPROPION HCL [Suspect]
     Indication: DEPRESSION
     Dosage: 75MG IN THE MORNING
     Route: 048
     Dates: start: 20051205
  2. WELLBUTRIN [Suspect]
  3. TYLENOL W/ CODEINE NO. 3 [Concomitant]
  4. T4 [Concomitant]

REACTIONS (10)
  - AGITATION [None]
  - ANXIETY [None]
  - CONDITION AGGRAVATED [None]
  - DEPRESSION [None]
  - FATIGUE [None]
  - INCORRECT DOSE ADMINISTERED [None]
  - INSOMNIA [None]
  - NAUSEA [None]
  - POOR QUALITY SLEEP [None]
  - TARDIVE DYSKINESIA [None]
